FAERS Safety Report 7594827-5 (Version None)
Quarter: 2011Q3

REPORT INFORMATION
  Report Type: 
  Country: None (occurrence: None)
  Receive Date: 20110707
  Receipt Date: 20110628
  Transmission Date: 20111222
  Serious: Yes (Other)
  Sender: FDA-Public Use
  Company Number: GB-ELI_LILLY_AND_COMPANY-GB201106007976

PATIENT
  Age: 54 Year
  Sex: Male
  Weight: 89 kg

DRUGS (13)
  1. BYETTA [Suspect]
     Dosage: UNK UNK, UNKNOWN
     Route: 058
     Dates: start: 20081001
  2. DOXAZOSIN MESYLATE [Concomitant]
  3. AMLODIPINE [Concomitant]
  4. ORLISTAT [Concomitant]
  5. METFORMIN HCL [Concomitant]
  6. ACARBOSE [Concomitant]
  7. ATORVASTATIN [Concomitant]
  8. CLOPIDOGREL [Concomitant]
  9. LANSOPRAZOLE [Concomitant]
  10. LANTUS [Concomitant]
  11. GLIMEPIRIDE [Concomitant]
  12. RAMIPRIL [Concomitant]
  13. TRAMADOL HCL [Concomitant]

REACTIONS (2)
  - DIABETES MELLITUS INADEQUATE CONTROL [None]
  - INCORRECT DOSE ADMINISTERED [None]
